FAERS Safety Report 4907085-4 (Version None)
Quarter: 2006Q1

REPORT INFORMATION
  Report Type: 
  Country: None (occurrence: None)
  Receive Date: 20060206
  Receipt Date: 20060123
  Transmission Date: 20060701
  Serious: Yes (Death, Other)
  Sender: FDA-Public Use
  Company Number: 2006014249

PATIENT
  Age: 64 Year
  Sex: Male

DRUGS (8)
  1. HEPARIN SODIUM [Suspect]
     Indication: ILL-DEFINED DISORDER
  2. BUFLOMEDIL (BUFLOMEDIL) [Concomitant]
  3. DIPYRIDAMOLE [Concomitant]
  4. CALCITONIN SALMON [Concomitant]
  5. BROMAZEPAM (BROMAZEPAM) [Concomitant]
  6. ACETAMINOPHEN [Concomitant]
  7. CODEINE (CODEINE) [Concomitant]
  8. GLYCERYL TRINITRATE (GLYCERYL TRINITRATE) [Concomitant]

REACTIONS (6)
  - ACTIVATED PARTIAL THROMBOPLASTIN TIME PROLONGED [None]
  - ANTIBODY TEST POSITIVE [None]
  - BLOOD BLISTER [None]
  - INJECTION SITE HAEMORRHAGE [None]
  - SEPTIC SHOCK [None]
  - SKIN LESION [None]
